FAERS Safety Report 5515055-0 (Version None)
Quarter: 2007Q4

REPORT INFORMATION
  Report Type: 
  Country: None (occurrence: None)
  Receive Date: 20071113
  Receipt Date: 20061204
  Transmission Date: 20080405
  Serious: No
  Sender: FDA-Public Use
  Company Number: A0630253A

PATIENT
  Sex: Male

DRUGS (4)
  1. COREG [Suspect]
     Indication: HYPERTENSION
     Dosage: 12.5MG TWICE PER DAY
     Route: 048
  2. VYTORIN [Concomitant]
  3. DILTIAZEM [Concomitant]
  4. PLAVIX [Concomitant]

REACTIONS (5)
  - DIZZINESS [None]
  - DYSPEPSIA [None]
  - DYSPNOEA [None]
  - FALL [None]
  - SKIN EXFOLIATION [None]
